FAERS Safety Report 7789682-4 (Version None)
Quarter: 2011Q3

REPORT INFORMATION
  Report Type: 
  Country: None (occurrence: None)
  Receive Date: 20110930
  Receipt Date: 20110926
  Transmission Date: 20111222
  Serious: Yes (Other)
  Sender: FDA-Public Use
  Company Number: US-TEVA-302541USA

PATIENT
  Sex: Female

DRUGS (2)
  1. COPAXONE [Suspect]
     Indication: MULTIPLE SCLEROSIS
     Route: 058
  2. GABAPENTIN [Concomitant]

REACTIONS (3)
  - HEARING IMPAIRED [None]
  - MIGRAINE [None]
  - PARTIAL SEIZURES [None]
